FAERS Safety Report 20744639 (Version 1)
Quarter: 2022Q2

REPORT INFORMATION
  Report Type: Spontaneous
  Country: US (occurrence: US)
  Receive Date: 20220425
  Receipt Date: 20220425
  Transmission Date: 20220721
  Serious: No
  Sender: FDA-Public Use
  Company Number: US-PFIZER INC-202101079506

PATIENT
  Age: 65 Year
  Sex: Male

DRUGS (1)
  1. SUTENT [Suspect]
     Active Substance: SUNITINIB MALATE
     Dosage: 50 MG, CYCLIC(1 Q DAY X 21 DAYS/ONE WEEK REST AND REPEAT)

REACTIONS (3)
  - Off label use [Unknown]
  - Product use issue [Unknown]
  - Stomatitis [Unknown]
